FAERS Safety Report 6862947-6 (Version None)
Quarter: 2010Q3

REPORT INFORMATION
  Report Type: 
  Country: None (occurrence: None)
  Receive Date: 20100721
  Receipt Date: 20100714
  Transmission Date: 20110219
  Serious: Yes (Hospitalization)
  Sender: FDA-Public Use
  Company Number: US-GILEAD-2010-0030241

PATIENT
  Sex: Female
  Weight: 89.892 kg

DRUGS (32)
  1. LETAIRIS [Suspect]
     Indication: PULMONARY ARTERIAL HYPERTENSION
     Route: 048
     Dates: start: 20080923
  2. REVATIO [Concomitant]
  3. OXYGEN [Concomitant]
  4. METOLAZONE [Concomitant]
  5. LASIX [Concomitant]
  6. XOPENEX [Concomitant]
  7. AMLODIPINE BESYLATE [Concomitant]
  8. FOSINOPRIL SODIUM [Concomitant]
  9. ARANESP [Concomitant]
  10. GLIMEPIRIDE [Concomitant]
  11. JANUVIA [Concomitant]
  12. VENTAVIS [Concomitant]
  13. COLCHICINE [Concomitant]
  14. ALLOPURINOL [Concomitant]
  15. PHENOBARBITAL [Concomitant]
  16. ELAVIL [Concomitant]
  17. BONIVA [Concomitant]
  18. PRILOSEC [Concomitant]
  19. ZOCOR [Concomitant]
  20. PRANDIN [Concomitant]
  21. OPTIVE [Concomitant]
  22. RESTASIS [Concomitant]
  23. ULTRAM [Concomitant]
  24. ADVAIR DISKUS 100/50 [Concomitant]
  25. ZITHROMAX [Concomitant]
  26. SPIRIVA [Concomitant]
  27. NEURONTIN [Concomitant]
  28. CLONIDINE HCL [Concomitant]
  29. LEVOXYL [Concomitant]
  30. DEEP SEA [Concomitant]
  31. MAG-OX [Concomitant]
  32. VITAMIN D [Concomitant]

REACTIONS (1)
  - LIVER DISORDER [None]
